FAERS Safety Report 10527923 (Version 1)
Quarter: 2014Q4

REPORT INFORMATION
  Report Type: Spontaneous
  Country: US (occurrence: None)
  Receive Date: 20141017
  Receipt Date: 20141017
  Transmission Date: 20150528
  Serious: Yes (Other)
  Sender: FDA-Public Use
  Company Number: None

PATIENT
  Age: 19 Year
  Sex: Female
  Weight: 51.26 kg

DRUGS (1)
  1. TIOCONAZOLE [Suspect]
     Active Substance: TIOCONAZOLE
     Indication: FUNGAL INFECTION
     Dosage: 1 DAY DOSAGE
     Route: 067
     Dates: start: 20141013, end: 20141014

REACTIONS (4)
  - Vulvovaginal swelling [None]
  - Vulvovaginal burning sensation [None]
  - Condition aggravated [None]
  - Fungal infection [None]

NARRATIVE: CASE EVENT DATE: 20141014
